FAERS Safety Report 10783365 (Version 1)
Quarter: 2015Q1

REPORT INFORMATION
  Report Type: Spontaneous
  Country: US (occurrence: US)
  Receive Date: 20150210
  Receipt Date: 20150210
  Transmission Date: 20150721
  Serious: No
  Sender: FDA-Public Use
  Company Number: US-GLAXOSMITHKLINE-A1086993A

PATIENT

DRUGS (3)
  1. ALLI [Suspect]
     Active Substance: ORLISTAT
     Indication: SUPPLEMENTATION THERAPY
     Dates: start: 2012, end: 201405
  2. MORPHINE [Concomitant]
     Active Substance: MORPHINE
  3. ALLI [Suspect]
     Active Substance: ORLISTAT
     Indication: GASTROINTESTINAL DISORDER

REACTIONS (2)
  - Drug administration error [Unknown]
  - Drug ineffective [Unknown]
